FAERS Safety Report 25493681 (Version 1)
Quarter: 2025Q2

REPORT INFORMATION
  Report Type: Spontaneous
  Country: CN (occurrence: CN)
  Receive Date: 20250630
  Receipt Date: 20250630
  Transmission Date: 20250717
  Serious: Yes (Life-Threatening, Hospitalization, Disabling, Other)
  Sender: CIPLA
  Company Number: CN-MLMSERVICE-20250609-PI536754-00141-2

PATIENT

DRUGS (1)
  1. EXEMESTANE [Suspect]
     Active Substance: EXEMESTANE
     Indication: Breast cancer
     Route: 048

REACTIONS (2)
  - Immune-mediated myositis [Recovering/Resolving]
  - Anti-SRP antibody positive [Recovering/Resolving]
